FAERS Safety Report 4788403-7 (Version None)
Quarter: 2005Q3

REPORT INFORMATION
  Report Type: 
  Country: None (occurrence: None)
  Receive Date: 20050920
  Receipt Date: 20050222
  Transmission Date: 20060218
  Serious: Yes (Hospitalization)
  Sender: FDA-Public Use
  Company Number: S05-USA-00939-01

PATIENT
  Age: 52 Year
  Sex: Female

DRUGS (3)
  1. CELEXA [Suspect]
     Dosage: 40 MG QD PO
     Route: 048
  2. GEODON [Suspect]
     Dosage: 60 MG BID PO
     Route: 048
     Dates: end: 20050101
  3. MULTIPLE MEDICATIONS (NOS) [Concomitant]

REACTIONS (3)
  - ELECTROCARDIOGRAM QT PROLONGED [None]
  - HYPOKALAEMIA [None]
  - TORSADE DE POINTES [None]
